FAERS Safety Report 17721120 (Version 2)
Quarter: 2020Q2

REPORT INFORMATION
  Report Type: Report from Study
  Country: US (occurrence: US)
  Receive Date: 20200429
  Receipt Date: 20200629
  Transmission Date: 20200714
  Serious: Yes (Other)
  Sender: FDA-Public Use
  Company Number: US-BIOGEN-2020BI00867650

PATIENT
  Age: 31 Year
  Sex: Female

DRUGS (1)
  1. TYSABRI [Suspect]
     Active Substance: NATALIZUMAB
     Indication: MULTIPLE SCLEROSIS
     Route: 042
     Dates: start: 20191120

REACTIONS (4)
  - Seizure like phenomena [Unknown]
  - Road traffic accident [Recovered/Resolved]
  - Dizziness [Unknown]
  - Sensory disturbance [Not Recovered/Not Resolved]

NARRATIVE: CASE EVENT DATE: 202002
